FAERS Safety Report 4423677-3 (Version None)
Quarter: 2004Q3

REPORT INFORMATION
  Report Type: 
  Country: None (occurrence: None)
  Receive Date: 20040806
  Receipt Date: 20040725
  Transmission Date: 20050211
  Serious: Yes (Other)
  Sender: FDA-Public Use
  Company Number: 2004225671CA

PATIENT
  Age: 16 Year
  Sex: Female
  Weight: 63.05 kg

DRUGS (2)
  1. DEPO-PROVERA [Suspect]
     Indication: CONTRACEPTION
     Dosage: 140MG/3 MONTHS 1ST INJECTION INTRAMUSCULAR
     Route: 030
     Dates: start: 20030803, end: 20030803
  2. DEPO-PROVERA [Suspect]
     Indication: CONTRACEPTION
     Dosage: 140MG/3 MONTHS 1ST INJECTION INTRAMUSCULAR
     Route: 030
     Dates: start: 20040206, end: 20040206

REACTIONS (3)
  - DEPRESSION [None]
  - SUICIDAL IDEATION [None]
  - WEIGHT INCREASED [None]
